FAERS Safety Report 5621899-7 (Version None)
Quarter: 2008Q1

REPORT INFORMATION
  Report Type: 
  Country: None (occurrence: None)
  Receive Date: 20080211
  Receipt Date: 20080102
  Transmission Date: 20080703
  Serious: Yes (Hospitalization, Other)
  Sender: FDA-Public Use
  Company Number: US-BRISTOL-MYERS SQUIBB COMPANY-14029227

PATIENT
  Age: 84 Year
  Sex: Female
  Weight: 71 kg

DRUGS (5)
  1. IXEMPRA FOR INJ [Suspect]
     Indication: BREAST CANCER
     Dates: start: 20071205
  2. TAGAMET [Concomitant]
  3. BENADRYL [Concomitant]
  4. ALOXI [Concomitant]
  5. DEXAMETHASONE ACETATE [Concomitant]

REACTIONS (6)
  - ABDOMINAL DISCOMFORT [None]
  - ATRIAL FIBRILLATION [None]
  - NAUSEA [None]
  - NEUTROPENIA [None]
  - PYREXIA [None]
  - VOMITING [None]
